FAERS Safety Report 10086702 (Version 1)
Quarter: 2014Q2

REPORT INFORMATION
  Report Type: Spontaneous
  Country: US (occurrence: None)
  Receive Date: 20140417
  Receipt Date: 20140417
  Transmission Date: 20141212
  Serious: Yes (Other)
  Sender: FDA-Public Use
  Company Number: None

PATIENT
  Age: 66 Year
  Sex: Female
  Weight: 63.2 kg

DRUGS (19)
  1. PROLIA [Suspect]
     Indication: OSTEOPOROSIS
     Dosage: 60 MG Q 6 MONTHS SQ
     Dates: start: 20140225
  2. THEOPHYLLINE [Concomitant]
  3. NEURONTIN [Concomitant]
  4. MELOXICAM [Concomitant]
  5. LISINOPRIL [Concomitant]
  6. HYDROCODONE-APAP [Concomitant]
  7. LIDODERM PATCH [Concomitant]
  8. LASIX [Concomitant]
  9. FLEXERIL [Concomitant]
  10. ZOFRAN [Concomitant]
  11. ATIVAN [Concomitant]
  12. ADVAIR [Concomitant]
  13. ALBUTEROL/ATROVENT [Concomitant]
  14. VENTOLIN [Concomitant]
  15. SINGULAIR [Concomitant]
  16. SPIRIVA [Concomitant]
  17. PREDNISONE [Concomitant]
  18. GUAIFENESIN [Concomitant]
  19. PERCOCET [Concomitant]

REACTIONS (6)
  - Pain [None]
  - Back pain [None]
  - Dyspnoea [None]
  - Pruritus [None]
  - Asthenia [None]
  - Cough [None]
